FAERS Safety Report 13632963 (Version 5)
Quarter: 2018Q2

REPORT INFORMATION
  Report Type: Spontaneous
  Country: JP (occurrence: JP)
  Receive Date: 20170609
  Receipt Date: 20180620
  Transmission Date: 20180711
  Serious: Yes (Hospitalization)
  Sender: FDA-Public Use
  Company Number: JP-CONCORDIA PHARMACEUTICALS INC.-GSH201706-003355

PATIENT
  Age: 55 Year
  Sex: Female
  Weight: 68 kg

DRUGS (7)
  1. MAGNESIUM OXIDE. [Concomitant]
     Active Substance: MAGNESIUM OXIDE
  2. PLAQUENIL [Suspect]
     Active Substance: HYDROXYCHLOROQUINE SULFATE
     Indication: SYSTEMIC LUPUS ERYTHEMATOSUS
     Route: 048
     Dates: start: 20170425, end: 20170518
  3. PREDONINE [Concomitant]
     Active Substance: PREDNISOLONE
  4. HIBON [Concomitant]
     Active Substance: RIBOFLAVIN
  5. IMURAN [Concomitant]
     Active Substance: AZATHIOPRINE
  6. OPALMON [Concomitant]
     Active Substance: LIMAPROST
  7. ZETIA [Concomitant]
     Active Substance: EZETIMIBE

REACTIONS (6)
  - Acute generalised exanthematous pustulosis [Recovered/Resolved]
  - Pruritus [Unknown]
  - Rash generalised [Unknown]
  - Lip swelling [Unknown]
  - Lymphocyte count decreased [Unknown]
  - Pyrexia [Unknown]

NARRATIVE: CASE EVENT DATE: 201705
